FAERS Safety Report 4665022-4 (Version None)
Quarter: 2005Q2

REPORT INFORMATION
  Report Type: 
  Country: None (occurrence: None)
  Receive Date: 20050517
  Receipt Date: 20050428
  Transmission Date: 20051028
  Serious: Yes (Hospitalization)
  Sender: FDA-Public Use
  Company Number: FR90113571A

PATIENT
  Age: 30 Year
  Sex: Female

DRUGS (3)
  1. PROZAC [Suspect]
     Indication: DEPRESSION
     Dosage: 20 MG/ 1 DAY
     Dates: start: 19900220, end: 19900310
  2. CLOBAZAM [Concomitant]
  3. TRINORDIOL (EUGYNON) [Concomitant]

REACTIONS (2)
  - INFLUENZA LIKE ILLNESS [None]
  - STEVENS-JOHNSON SYNDROME [None]
